FAERS Safety Report 8890078 (Version 1)
Quarter: 2012Q4

REPORT INFORMATION
  Report Type: Spontaneous
  Country: US (occurrence: None)
  Receive Date: 20121105
  Receipt Date: 20121105
  Transmission Date: 20130627
  Serious: Yes (Other)
  Sender: FDA-Public Use
  Company Number: None

PATIENT
  Age: 41 Year
  Sex: Male
  Weight: 89.36 kg

DRUGS (1)
  1. WELCHOL [Suspect]

REACTIONS (5)
  - Flatulence [None]
  - Constipation [None]
  - Abdominal pain [None]
  - Asthenia [None]
  - Feeling abnormal [None]
